FAERS Safety Report 5663542-7 (Version None)
Quarter: 2008Q1

REPORT INFORMATION
  Report Type: 
  Country: None (occurrence: None)
  Receive Date: 20080313
  Receipt Date: 20080306
  Transmission Date: 20080703
  Serious: Yes (Hospitalization)
  Sender: FDA-Public Use
  Company Number: JP-MERCK-0711USA01909

PATIENT
  Age: 66 Year
  Sex: Female

DRUGS (10)
  1. ZETIA [Suspect]
     Indication: HYPERCHOLESTEROLAEMIA
     Route: 048
     Dates: start: 20071030, end: 20071030
  2. CELECOX [Suspect]
     Indication: OSTEOARTHRITIS
     Route: 048
     Dates: start: 20071024, end: 20071026
  3. ALENDRONATE SODIUM [Concomitant]
     Route: 065
  4. VALSARTAN [Concomitant]
     Route: 065
  5. CILNIDIPINE [Concomitant]
     Route: 065
  6. GLIMEPIRIDE [Concomitant]
     Route: 065
  7. METFORMIN HYDROCHLORIDE [Concomitant]
     Route: 065
  8. VOGLIBOSE [Concomitant]
     Route: 065
  9. SHARK LIVER OIL [Concomitant]
     Route: 065
     Dates: start: 20070901, end: 20071102
  10. [THERAPY UNSPECIFIED] [Concomitant]
     Route: 065
     Dates: start: 20070901, end: 20071102

REACTIONS (1)
  - STEVENS-JOHNSON SYNDROME [None]
